FAERS Safety Report 15631469 (Version 1)
Quarter: 2018Q4

REPORT INFORMATION
  Report Type: Spontaneous
  Country: US (occurrence: US)
  Receive Date: 20181119
  Receipt Date: 20181119
  Transmission Date: 20190205
  Serious: No
  Sender: FDA-Public Use
  Company Number: US-009507513-1811USA003607

PATIENT
  Age: 28 Year
  Sex: Female

DRUGS (2)
  1. SYLATRON [Suspect]
     Active Substance: PEGINTERFERON ALFA-2B
     Indication: MYELOPROLIFERATIVE NEOPLASM
     Dosage: 30 MICROGRAM
     Route: 058
     Dates: start: 20171031
  2. SYLATRON [Suspect]
     Active Substance: PEGINTERFERON ALFA-2B
     Dosage: UNK UNK, Q3W
     Route: 058
     Dates: start: 20181108

REACTIONS (1)
  - Off label use [Unknown]

NARRATIVE: CASE EVENT DATE: 20181108
